FAERS Safety Report 7403033-6 (Version None)
Quarter: 2011Q1

REPORT INFORMATION
  Report Type: 
  Country: None (occurrence: None)
  Receive Date: 20110324
  Receipt Date: 20110311
  Transmission Date: 20110831
  Serious: Yes (Hospitalization, Other)
  Sender: FDA-Public Use
  Company Number: 2011PROUSA00249

PATIENT
  Age: 62 Year
  Sex: Male
  Weight: 73 kg

DRUGS (20)
  1. PROVENGE [Suspect]
     Dosage: 250 ML, SINGLE, INTRAVENOUS
     Route: 042
     Dates: start: 20110106, end: 20110106
  2. AVODART [Concomitant]
  3. PRILOSEC [Concomitant]
  4. RESVERTL-POMGRN-GM T-GRP-ACI CAPSULE [Concomitant]
  5. VIVELLE-DOT [Concomitant]
  6. POMEGRANATE SEED [Concomitant]
  7. IV PAIN MED NOS () [Suspect]
  8. ACTIGALL [Concomitant]
  9. COUMADIN [Concomitant]
  10. NEURONTIN [Concomitant]
  11. LUPRON (LEUPRORELIN ACETATE) INJECTION [Suspect]
     Dosage: SUBCUTANEOUS
     Route: 058
  12. HYDROMORPHONE (HYDROMORPHONE) [Concomitant]
  13. SUPER BIO-CURCUMIN [Concomitant]
  14. GABAPENTIN [Concomitant]
  15. PROVENGE [Suspect]
     Indication: PROSTATE CANCER METASTATIC
     Dosage: 250ML, SINGLE, INTRAVENOUS
     Route: 042
     Dates: start: 20101210, end: 20101210
  16. KETOCONAZOLE [Concomitant]
  17. DOSTENEX (CABERGOLINE) [Concomitant]
  18. PROVENGE [Suspect]
     Dosage: 250 ML, SINGLE, INTRAVENOUS
     Route: 042
     Dates: start: 20110203, end: 20110203
  19. LEUKINE [Suspect]
     Dosage: 250 MCG, QD
  20. VITAMIN D [Concomitant]

REACTIONS (20)
  - UNEVALUABLE EVENT [None]
  - DIZZINESS [None]
  - BLOOD GLUCOSE INCREASED [None]
  - PROSTATIC SPECIFIC ANTIGEN INCREASED [None]
  - METASTASES TO BONE [None]
  - ASPARTATE AMINOTRANSFERASE INCREASED [None]
  - NORMOCHROMIC NORMOCYTIC ANAEMIA [None]
  - FATIGUE [None]
  - NEOPLASM MALIGNANT [None]
  - THROMBOCYTOPENIA [None]
  - PRESYNCOPE [None]
  - WHITE BLOOD CELL COUNT INCREASED [None]
  - COELIAC ARTERY STENOSIS [None]
  - BLOOD CREATINE PHOSPHOKINASE INCREASED [None]
  - ANXIETY [None]
  - CHOLELITHIASIS [None]
  - BONE PAIN [None]
  - VOMITING [None]
  - BLOOD ALKALINE PHOSPHATASE INCREASED [None]
  - INADEQUATE ANALGESIA [None]
